FAERS Safety Report 5694754-4 (Version None)
Quarter: 2008Q2

REPORT INFORMATION
  Report Type: 
  Country: None (occurrence: None)
  Receive Date: 20080404
  Receipt Date: 20060326
  Transmission Date: 20081010
  Serious: Yes (Death)
  Sender: FDA-Public Use
  Company Number: US-JNJFOC-20080400394

PATIENT
  Age: 82 Year
  Sex: Male

DRUGS (2)
  1. DOXORUBICIN HYDROCHLORIDE [Suspect]
     Indication: ACUTE MYELOID LEUKAEMIA
     Route: 042
  2. BORTEZOMIB [Suspect]
     Indication: HAEMATOLOGICAL MALIGNANCY
     Route: 042

REACTIONS (2)
  - PNEUMONIA [None]
  - RESPIRATORY FAILURE [None]
